FAERS Safety Report 10931623 (Version 1)
Quarter: 2015Q1

REPORT INFORMATION
  Report Type: Spontaneous
  Country: US (occurrence: US)
  Receive Date: 20150319
  Receipt Date: 20150319
  Transmission Date: 20150721
  Serious: No
  Sender: FDA-Public Use
  Company Number: US-BAUSCH-SYM-2014-23577

PATIENT
  Age: 71 Year
  Sex: Female
  Weight: 46.26 kg

DRUGS (2)
  1. TRETINOIN. [Suspect]
     Active Substance: TRETINOIN
     Indication: HYPERSENSITIVITY
     Route: 061
     Dates: start: 2011
  2. TRETINOIN. [Suspect]
     Active Substance: TRETINOIN
     Indication: BLISTER

REACTIONS (3)
  - Therapeutic response unexpected [Unknown]
  - Off label use [Unknown]
  - No adverse event [Unknown]

NARRATIVE: CASE EVENT DATE: 2011
